FAERS Safety Report 6423842-X (Version None)
Quarter: 2009Q4

REPORT INFORMATION
  Report Type: 
  Country: None (occurrence: None)
  Receive Date: 20091102
  Receipt Date: 20091023
  Transmission Date: 20100525
  Serious: Yes (Hospitalization)
  Sender: FDA-Public Use
  Company Number: US-KINGPHARMUSA00001-K200901198

PATIENT
  Sex: Male

DRUGS (8)
  1. ALTACE [Suspect]
     Indication: HYPERTENSION
     Dosage: 5 MG, QD
     Route: 048
  2. SEROQUEL [Suspect]
     Indication: PSYCHOTIC DISORDER
     Dosage: 300 MG, BID
     Route: 048
     Dates: start: 20090101
  3. SEROQUEL [Suspect]
     Dosage: 500 MG, QD
     Route: 048
     Dates: start: 20090101
  4. SEROQUEL [Suspect]
     Dosage: 400 MG, QD
     Route: 048
     Dates: start: 20090101
  5. ATENOLOL [Suspect]
     Indication: HYPERTENSION
     Dosage: 50 MG, QD
     Route: 048
  6. ACETYLSALICYLIC ACID [Concomitant]
     Dosage: 75 MG, UNK
     Route: 048
  7. SELECTIVE SEROTONIN REUPTAKE INHIBITORS [Concomitant]
     Indication: DEPRESSED MOOD
     Dosage: 30 MG, UNK
     Route: 048
  8. ACETAMINOPHEN [Concomitant]
     Indication: PAIN
     Dosage: 1-3 G, UNK
     Route: 048

REACTIONS (4)
  - ACCIDENTAL OVERDOSE [None]
  - HYPERTENSION [None]
  - HYPOTENSION [None]
  - SYNCOPE [None]
